FAERS Safety Report 7253448-4 (Version None)
Quarter: 2011Q1

REPORT INFORMATION
  Report Type: 
  Country: None (occurrence: None)
  Receive Date: 20110129
  Receipt Date: 20100312
  Transmission Date: 20110831
  Serious: No
  Sender: FDA-Public Use
  Company Number: US-ABBOTT-10P-163-0632442-00

PATIENT
  Sex: Female
  Weight: 74.91 kg

DRUGS (9)
  1. HUMIRA [Suspect]
     Indication: PSORIASIS
     Route: 058
     Dates: start: 20100118, end: 20100118
  2. RESTASIS [Concomitant]
     Indication: DRY EYE
     Route: 047
  3. MULTI-VITAMIN [Concomitant]
     Indication: VITAMIN SUPPLEMENTATION
  4. ALBUTEROL [Concomitant]
     Indication: ASTHMA
  5. VITAMIN B-12 [Concomitant]
     Indication: VITAMIN SUPPLEMENTATION
  6. CALCIUM SUPPLEMENT [Concomitant]
     Indication: MINERAL SUPPLEMENTATION
  7. HUMIRA [Suspect]
     Dates: start: 20100125, end: 20100125
  8. FLONASE [Concomitant]
     Indication: ASTHMA
     Route: 055
  9. HUMIRA [Suspect]
     Dates: start: 20100201

REACTIONS (4)
  - PSORIASIS [None]
  - CHEST DISCOMFORT [None]
  - NASOPHARYNGITIS [None]
  - CHRONIC OBSTRUCTIVE PULMONARY DISEASE [None]
